FAERS Safety Report 13393250 (Version 1)
Quarter: 2017Q1

REPORT INFORMATION
  Report Type: Not Available
  Country: BR (occurrence: BR)
  Receive Date: 20170331
  Receipt Date: 20170331
  Transmission Date: 20170429
  Serious: Yes (Other)
  Sender: FDA-Public Use
  Company Number: BR-AKORN-53859

PATIENT
  Age: 66 Year
  Sex: Male
  Weight: 78 kg

DRUGS (1)
  1. COSOPT [Suspect]
     Active Substance: DORZOLAMIDE HYDROCHLORIDE\TIMOLOL MALEATE

REACTIONS (2)
  - Product use issue [Unknown]
  - Diabetes mellitus [Not Recovered/Not Resolved]
